FAERS Safety Report 7540582-4 (Version None)
Quarter: 2011Q2

REPORT INFORMATION
  Report Type: 
  Country: None (occurrence: None)
  Receive Date: 20110610
  Receipt Date: 20110603
  Transmission Date: 20111010
  Serious: Yes (Hospitalization)
  Sender: FDA-Public Use
  Company Number: B0725213A

PATIENT
  Sex: Male

DRUGS (1)
  1. AVANDIA [Suspect]
     Indication: DIABETES MELLITUS
     Route: 048
     Dates: start: 20010530

REACTIONS (8)
  - CARDIAC FAILURE CONGESTIVE [None]
  - ARRHYTHMIA [None]
  - SUBDURAL HAEMATOMA [None]
  - STENT PLACEMENT [None]
  - ATRIAL FIBRILLATION [None]
  - ILL-DEFINED DISORDER [None]
  - ANGIOPLASTY [None]
  - CARDIAC ASSISTANCE DEVICE USER [None]
